FAERS Safety Report 17284395 (Version 1)
Quarter: 2020Q1

REPORT INFORMATION
  Report Type: Spontaneous
  Country: US (occurrence: US)
  Receive Date: 20200117
  Receipt Date: 20200117
  Transmission Date: 20200409
  Serious: No
  Sender: FDA-Public Use
  Company Number: US-CHILTERN-US-2019-000865

PATIENT

DRUGS (3)
  1. MURO 128 [Concomitant]
     Active Substance: SODIUM CHLORIDE
     Indication: CORNEAL DYSTROPHY
     Dosage: 2 GTT, BID
     Route: 047
  2. ARTIFICIAL TEARS [Concomitant]
     Active Substance: GLYCERIN\HYPROMELLOSES\POLYETHYLENE GLYCOL 400
     Route: 047
  3. RHOPRESSA [Suspect]
     Active Substance: NETARSUDIL MESYLATE
     Indication: CORNEAL DYSTROPHY
     Dosage: 2 GTT, QD
     Route: 047
     Dates: start: 20191011, end: 20191011

REACTIONS (7)
  - Headache [Unknown]
  - Visual acuity reduced [Not Recovered/Not Resolved]
  - Off label use [Unknown]
  - Vision blurred [Not Recovered/Not Resolved]
  - Corneal oedema [Not Recovered/Not Resolved]
  - Corneal thinning [Not Recovered/Not Resolved]
  - Asthenopia [Unknown]

NARRATIVE: CASE EVENT DATE: 201910
